FAERS Safety Report 5523858-1 (Version None)
Quarter: 2007Q4

REPORT INFORMATION
  Report Type: 
  Country: None (occurrence: None)
  Receive Date: 20071121
  Receipt Date: 20071115
  Transmission Date: 20080405
  Serious: Yes (Hospitalization)
  Sender: FDA-Public Use
  Company Number: CH-SHR-CH-2007-043517

PATIENT
  Sex: Female
  Weight: 1.09 kg

DRUGS (1)
  1. YASMIN [Suspect]
     Route: 064

REACTIONS (8)
  - AMNIOTIC CAVITY INFECTION [None]
  - BRADYCARDIA NEONATAL [None]
  - HYPERBILIRUBINAEMIA NEONATAL [None]
  - HYPERTENSION NEONATAL [None]
  - NEONATAL RESPIRATORY DISTRESS SYNDROME [None]
  - PATENT DUCTUS ARTERIOSUS [None]
  - PREMATURE BABY [None]
  - SLEEP APNOEA SYNDROME [None]
